FAERS Safety Report 8422651-X (Version None)
Quarter: 2012Q2

REPORT INFORMATION
  Report Type: 
  Country: None (occurrence: None)
  Receive Date: 20120608
  Receipt Date: 20120606
  Transmission Date: 20120825
  Serious: Yes (Hospitalization, Other)
  Sender: FDA-Public Use
  Company Number: GB-ROCHE-779223

PATIENT
  Sex: Female
  Weight: 76.7 kg

DRUGS (8)
  1. DICLOFENAC SODIUM [Concomitant]
     Dosage: FREQUENCY: DAILY
  2. CYCLIZINE [Concomitant]
     Indication: NAUSEA
  3. XELODA [Suspect]
     Indication: BREAST CANCER
     Dosage: CYCLE:1 FREQUENCY: D1 TO D14 EVERY 3 WEEKS; LAST DOSE PRIOR TO SAE: 08 APRIL 2011.
     Route: 048
  4. VINFLUNINE AND VINFLUNINE [Suspect]
     Indication: BREAST CANCER
     Dosage: CYCLE:1 FREQUENCY: DAY 1 EVERY 3 WEEKS.  LAST DOSE PRIOR TO SAE: 08 APRIL 2011.
     Route: 042
  5. OXYNORM [Concomitant]
     Dosage: FREQUENCY: DAILY
  6. LANSOPRAZOLE [Concomitant]
     Dosage: FREQUENCY: DAILY
  7. CYCLIZINE [Concomitant]
     Indication: VOMITING
  8. OXYCONTIN [Concomitant]
     Dosage: DAILY

REACTIONS (2)
  - HEPATIC PAIN [None]
  - CONSTIPATION [None]
